FAERS Safety Report 12834847 (Version 1)
Quarter: 2016Q4

REPORT INFORMATION
  Report Type: Report from Study
  Country: BG (occurrence: BG)
  Receive Date: 20161010
  Receipt Date: 20161010
  Transmission Date: 20170207
  Serious: Yes (Death)
  Sender: FDA-Public Use
  Company Number: BG-B.I. PHARMACEUTICALS,INC./RIDGEFIELD-2015-BI-20442BI

PATIENT
  Age: 71 Year
  Sex: Female
  Weight: 78 kg

DRUGS (11)
  1. ALISKIREN [Concomitant]
     Active Substance: ALISKIREN
     Indication: HYPERTENSION
     Route: 048
     Dates: start: 201004, end: 20150319
  2. PYRACETAM [Concomitant]
     Indication: ISCHAEMIC STROKE
     Route: 048
     Dates: start: 200606, end: 20150319
  3. VALSARTAN. [Concomitant]
     Active Substance: VALSARTAN
     Indication: HYPERTENSION
     Route: 048
     Dates: start: 201004, end: 20150319
  4. PERINDOPRIL [Concomitant]
     Active Substance: PERINDOPRIL
     Indication: HYPERTENSION
     Route: 048
     Dates: start: 201004, end: 20150319
  5. BISOPROLOL [Concomitant]
     Active Substance: BISOPROLOL
     Indication: CORONARY ARTERY DISEASE
     Route: 048
     Dates: start: 201004, end: 20150319
  6. BLINDED LINAGLIPTIN [Suspect]
     Active Substance: LINAGLIPTIN
     Indication: TYPE 2 DIABETES MELLITUS
     Route: 048
     Dates: start: 20140725, end: 20150319
  7. NIFEDIPINE. [Concomitant]
     Active Substance: NIFEDIPINE
     Indication: HYPERTENSION
     Route: 048
     Dates: start: 201004, end: 20150319
  8. INDAPAMIDE. [Concomitant]
     Active Substance: INDAPAMIDE
     Indication: HYPERTENSION
     Route: 048
     Dates: start: 201004, end: 20150319
  9. CLOPIDOGREL [Concomitant]
     Active Substance: CLOPIDOGREL BISULFATE
     Indication: CORONARY ARTERY DISEASE
     Route: 048
     Dates: start: 201004, end: 20150319
  10. HYDROXYCARBAMIDE [Concomitant]
     Active Substance: HYDROXYUREA
     Indication: THROMBOCYTOSIS
     Route: 048
     Dates: start: 201009, end: 20150319
  11. INSULIN NOVOMIX [Concomitant]
     Indication: TYPE 2 DIABETES MELLITUS
     Dosage: STRENGTH: 30
     Route: 058
     Dates: start: 201009, end: 20150319

REACTIONS (1)
  - Myocardial ischaemia [Fatal]

NARRATIVE: CASE EVENT DATE: 20150226
